FAERS Safety Report 13053902 (Version 1)
Quarter: 2016Q4

REPORT INFORMATION
  Report Type: Spontaneous
  Country: US (occurrence: US)
  Receive Date: 20161222
  Receipt Date: 20161222
  Transmission Date: 20170207
  Serious: No
  Sender: FDA-Public Use
  Company Number: US-009507513-1612USA005682

PATIENT
  Age: 26 Year
  Sex: Female
  Weight: 76 kg

DRUGS (1)
  1. ETONOGESTREL IMPLANT- UNKNOWN [Suspect]
     Active Substance: ETONOGESTREL
     Dosage: 1 IMPLANT ON HER ARM
     Dates: start: 2012

REACTIONS (5)
  - Complication associated with device [Recovered/Resolved]
  - Incorrect drug administration duration [Unknown]
  - No adverse event [Unknown]
  - Complication associated with device [Not Recovered/Not Resolved]
  - Device deployment issue [Not Recovered/Not Resolved]

NARRATIVE: CASE EVENT DATE: 2015
